FAERS Safety Report 21959172 (Version 3)
Quarter: 2024Q1

REPORT INFORMATION
  Report Type: Other
  Country: EG (occurrence: None)
  Receive Date: 20230206
  Receipt Date: 20240124
  Transmission Date: 20240410
  Serious: Yes (Other)
  Sender: FDA-Public Use
  Company Number: EG-ROCHE-3277928

PATIENT
  Age: 34 Year
  Sex: Male
  Weight: 65 kg

DRUGS (1)
  1. OCREVUS [Suspect]
     Active Substance: OCRELIZUMAB
     Indication: Multiple sclerosis
     Route: 042
     Dates: start: 20210131, end: 20230219

REACTIONS (5)
  - Urinary retention [Recovered/Resolved]
  - Drug ineffective [Unknown]
  - Musculoskeletal stiffness [Recovered/Resolved]
  - Influenza [Recovered/Resolved]
  - Gait disturbance [Not Recovered/Not Resolved]

NARRATIVE: CASE EVENT DATE: 20210131
